FAERS Safety Report 4381715-0 (Version None)
Quarter: 2004Q2

REPORT INFORMATION
  Report Type: 
  Country: None (occurrence: None)
  Receive Date: 20040603
  Receipt Date: 20030718
  Transmission Date: 20050107
  Serious: Yes (Death, Other)
  Sender: FDA-Public Use
  Company Number: 200316599US

PATIENT
  Age: 60 Year
  Sex: Female

DRUGS (3)
  1. LOVENOX [Suspect]
     Indication: ACUTE MYOCARDIAL INFARCTION
  2. INTEGRILIN [Suspect]
  3. ASPIRIN [Concomitant]

REACTIONS (4)
  - ABDOMINAL HAEMATOMA [None]
  - ABDOMINAL PAIN [None]
  - HAEMOGLOBIN DECREASED [None]
  - HAEMORRHAGE [None]
